FAERS Safety Report 6159480-6 (Version None)
Quarter: 2009Q2

REPORT INFORMATION
  Report Type: 
  Country: None (occurrence: None)
  Receive Date: 20090420
  Receipt Date: 20071121
  Transmission Date: 20091009
  Serious: Yes (Death, Hospitalization)
  Sender: FDA-Public Use
  Company Number: US-ASTRAZENECA-2006UW21504

PATIENT
  Age: 24020 Day
  Sex: Female
  Weight: 90.3 kg

DRUGS (31)
  1. SEROQUEL [Suspect]
     Indication: SCHIZOPHRENIA
     Route: 048
     Dates: end: 20050921
  2. SEROQUEL [Suspect]
     Indication: DEPRESSION
     Route: 048
     Dates: end: 20050921
  3. SEROQUEL [Suspect]
     Indication: HALLUCINATION
     Route: 048
     Dates: end: 20050921
  4. SEROQUEL [Suspect]
     Dosage: 50-100MG
     Route: 048
     Dates: start: 20050502
  5. SEROQUEL [Suspect]
     Dosage: 50-100MG
     Route: 048
     Dates: start: 20050502
  6. SEROQUEL [Suspect]
     Dosage: 50-100MG
     Route: 048
     Dates: start: 20050502
  7. COLACE [Concomitant]
  8. COUMADIN [Concomitant]
  9. EFFEXOR XR [Concomitant]
  10. GLUCOTROL XL [Concomitant]
  11. LANTUS [Concomitant]
  12. LEVAQUIN [Concomitant]
  13. LIPITOR [Concomitant]
  14. PREDNISOLONE [Concomitant]
  15. SODIUM BICARBONATE [Concomitant]
  16. COLCHICINE [Concomitant]
  17. PROTONIX [Concomitant]
  18. PHENERGAN [Concomitant]
  19. DARVOCET [Concomitant]
  20. AMBIEN [Concomitant]
  21. LASIX [Concomitant]
  22. ACCUPRIL [Concomitant]
  23. PROMED [Concomitant]
  24. ATIVAN [Concomitant]
  25. LORTAB [Concomitant]
  26. HUMULIN 70/30 [Concomitant]
  27. POTASSIUM CHLORIDE [Concomitant]
  28. ZOLOFT [Concomitant]
  29. VYTORIN [Concomitant]
  30. SPIRONOLACTONE [Concomitant]
  31. KLOR-CON [Concomitant]

REACTIONS (23)
  - AMYLOIDOSIS [None]
  - ANAEMIA [None]
  - ARTHRALGIA [None]
  - ASPIRATION [None]
  - CARDIAC ARREST [None]
  - CARDIOMYOPATHY [None]
  - DEEP VEIN THROMBOSIS [None]
  - DIARRHOEA [None]
  - DIZZINESS [None]
  - DYSPNOEA [None]
  - GENERALISED OEDEMA [None]
  - HAEMORRHOIDS [None]
  - HEADACHE [None]
  - HYPONATRAEMIA [None]
  - NAUSEA [None]
  - NEPHROTIC SYNDROME [None]
  - OEDEMA PERIPHERAL [None]
  - ORTHOPNOEA [None]
  - PITTING OEDEMA [None]
  - RENAL FAILURE [None]
  - RENAL FAILURE CHRONIC [None]
  - SEPSIS [None]
  - TYPE 2 DIABETES MELLITUS [None]
